FAERS Safety Report 10312040 (Version 4)
Quarter: 2014Q3

REPORT INFORMATION
  Report Type: Report from Study
  Country: US (occurrence: US)
  Receive Date: 20140717
  Receipt Date: 20140827
  Transmission Date: 20150326
  Serious: Yes (Other)
  Sender: FDA-Public Use
  Company Number: PHEH2014US013374

PATIENT
  Age: 42 Year
  Sex: Female

DRUGS (1)
  1. GILENYA [Suspect]
     Active Substance: FINGOLIMOD HYDROCHLORIDE
     Indication: MULTIPLE SCLEROSIS
     Dosage: 0.5 MG, QD
     Route: 048
     Dates: start: 20140612, end: 20140716

REACTIONS (7)
  - Psychotic behaviour [Not Recovered/Not Resolved]
  - Crying [Not Recovered/Not Resolved]
  - Mental disorder [Unknown]
  - Depression [Recovering/Resolving]
  - General physical condition abnormal [Not Recovered/Not Resolved]
  - Muscle spasms [Unknown]
  - Emotional disorder [Not Recovered/Not Resolved]

NARRATIVE: CASE EVENT DATE: 20140612
